FAERS Safety Report 4300467-3 (Version None)
Quarter: 2004Q1

REPORT INFORMATION
  Report Type: 
  Country: None (occurrence: None)
  Receive Date: 20040217
  Receipt Date: 20040206
  Transmission Date: 20041129
  Serious: Yes (Hospitalization)
  Sender: FDA-Public Use
  Company Number: 2004198216JP

PATIENT
  Age: 28 Year
  Sex: Female

DRUGS (6)
  1. SOLU-CORTEF [Suspect]
     Indication: DERMATITIS ALLERGIC
     Dosage: 100 MG, SINGLE, IV
     Route: 042
     Dates: start: 20040204, end: 20040204
  2. MINOMYCIN [Concomitant]
  3. QUISNON (SWORD TABLET) [Concomitant]
  4. MUCODYNE [Concomitant]
  5. HUSTAZOL (CLOPERASTINE HYDROCHLORIDE) [Concomitant]
  6. KOSHIBAKOTO [Concomitant]

REACTIONS (4)
  - EXANTHEM [None]
  - HYPOAESTHESIA [None]
  - PRURITUS [None]
  - SHOCK [None]
